FAERS Safety Report 17988563 (Version 4)
Quarter: 2020Q4

REPORT INFORMATION
  Report Type: Report from Study
  Country: CA (occurrence: CA)
  Receive Date: 20200707
  Receipt Date: 20201021
  Transmission Date: 20210113
  Serious: Yes (Other)
  Sender: FDA-Public Use
  Company Number: CA-BRISTOL-MYERS SQUIBB COMPANY-BMS-2020-052265

PATIENT
  Age: 66 Year
  Sex: Female

DRUGS (1)
  1. ABATACEPT [Suspect]
     Active Substance: ABATACEPT
     Indication: RHEUMATOID ARTHRITIS
     Dosage: 750 MILLIGRAM, Q4WK
     Route: 042
     Dates: start: 20180718

REACTIONS (7)
  - Back pain [Not Recovered/Not Resolved]
  - Tenderness [Unknown]
  - Arthralgia [Recovering/Resolving]
  - Breast cancer metastatic [Unknown]
  - Arthritis [Recovering/Resolving]
  - Chronic obstructive pulmonary disease [Unknown]
  - Gait inability [Unknown]

NARRATIVE: CASE EVENT DATE: 20200626
